FAERS Safety Report 4980535-3 (Version None)
Quarter: 2006Q2

REPORT INFORMATION
  Report Type: 
  Country: None (occurrence: None)
  Receive Date: 20060424
  Receipt Date: 20060413
  Transmission Date: 20061013
  Serious: Yes (Other)
  Sender: FDA-Public Use
  Company Number: JP-ROCHE-444316

PATIENT
  Age: 66 Year
  Sex: Female

DRUGS (7)
  1. TORSEMIDE [Suspect]
     Indication: CARDIAC FAILURE
     Route: 048
     Dates: start: 20060125, end: 20060228
  2. BLOPRESS [Concomitant]
  3. LANIRAPID [Concomitant]
  4. WARFARIN SODIUM [Concomitant]
  5. ARTIST [Concomitant]
  6. RYTHMODAN [Concomitant]
  7. CRAVIT [Concomitant]

REACTIONS (1)
  - THROMBOCYTOPENIA [None]
